FAERS Safety Report 10013638 (Version 1)
Quarter: 2014Q1

REPORT INFORMATION
  Report Type: Spontaneous
  Country: US (occurrence: US)
  Receive Date: 20140315
  Receipt Date: 20140315
  Transmission Date: 20141002
  Serious: No
  Sender: FDA-Public Use
  Company Number: US-B.I. PHARMACEUTICALS,INC./RIDGEFIELD-2014-BI-10129BP

PATIENT
  Age: 66 Year
  Sex: Female

DRUGS (2)
  1. SPIRIVA [Suspect]
     Indication: PRODUCT USED FOR UNKNOWN INDICATION
     Dosage: 18 MCG
     Route: 055
     Dates: start: 2010
  2. MUCINEX [Concomitant]
     Route: 048

REACTIONS (2)
  - Respiratory tract congestion [Not Recovered/Not Resolved]
  - Upper-airway cough syndrome [Not Recovered/Not Resolved]
